FAERS Safety Report 5624077-0 (Version None)
Quarter: 2008Q1

REPORT INFORMATION
  Report Type: 
  Country: None (occurrence: None)
  Receive Date: 20080213
  Receipt Date: 20070910
  Transmission Date: 20080703
  Serious: No
  Sender: FDA-Public Use
  Company Number: US-KINGPHARMUSA00001-K200701157

PATIENT

DRUGS (1)
  1. EPIPEN [Suspect]
     Dosage: UNK, SINGLE
     Dates: start: 20070907, end: 20070907

REACTIONS (2)
  - ACCIDENTAL EXPOSURE [None]
  - INJECTION SITE PALLOR [None]
